FAERS Safety Report 25057138 (Version 1)
Quarter: 2025Q1

REPORT INFORMATION
  Report Type: Report from Study
  Country: IL (occurrence: IL)
  Receive Date: 20250310
  Receipt Date: 20250310
  Transmission Date: 20250409
  Serious: Yes (Hospitalization, Other)
  Sender: TAKEDA
  Company Number: IL-TAKEDA-2023TUS082878

PATIENT
  Age: 71 Year
  Sex: Female

DRUGS (2)
  1. VEDOLIZUMAB [Suspect]
     Active Substance: VEDOLIZUMAB
     Indication: Crohn^s disease
     Dosage: 300 MILLIGRAM, Q6WEEKS
     Dates: start: 20230124
  2. SANDOSTATIN [Suspect]
     Active Substance: OCTREOTIDE ACETATE
     Indication: Product used for unknown indication

REACTIONS (9)
  - Cholecystitis [Unknown]
  - Diarrhoea [Not Recovered/Not Resolved]
  - Stress [Unknown]
  - Off label use [Unknown]
  - Cholelithiasis [Unknown]
  - Genital infection fungal [Unknown]
  - Skin laceration [Unknown]
  - Urinary tract infection [Unknown]
  - Cystitis [Unknown]

NARRATIVE: CASE EVENT DATE: 20230124
